FAERS Safety Report 20094154 (Version 1)
Quarter: 2021Q4

REPORT INFORMATION
  Report Type: Spontaneous
  Country: US (occurrence: US)
  Receive Date: 20211122
  Receipt Date: 20211122
  Transmission Date: 20220303
  Serious: Yes (Other)
  Sender: FDA-Public Use
  Company Number: US-AUROBINDO-AUR-APL-2021-047529

PATIENT
  Age: 70 Year
  Sex: Male

DRUGS (3)
  1. AMIODARONE HYDROCHLORIDE [Suspect]
     Active Substance: AMIODARONE HYDROCHLORIDE
     Indication: Heart rate increased
     Dosage: UNK
     Route: 040
  2. DIGOXIN [Suspect]
     Active Substance: DIGOXIN
     Indication: Heart rate increased
     Dosage: UNK
     Route: 042
  3. OXYGEN [Concomitant]
     Active Substance: OXYGEN
     Indication: Product used for unknown indication
     Dosage: UNK (WEANED TO 3 L)
     Route: 065

REACTIONS (1)
  - Treatment failure [Unknown]
